FAERS Safety Report 22304955 (Version 2)
Quarter: 2023Q2

REPORT INFORMATION
  Report Type: Spontaneous
  Country: US (occurrence: US)
  Receive Date: 20230510
  Receipt Date: 20230607
  Transmission Date: 20230721
  Serious: Yes (Other)
  Sender: FDA-Public Use
  Company Number: US-PROCTER_AND_GAMBLE-GS23018876

PATIENT
  Sex: Male
  Weight: 88.435 kg

DRUGS (2)
  1. CREST PRO-HEALTH GUM CARE [Suspect]
     Active Substance: CETYLPYRIDINIUM CHLORIDE
     Indication: Dental disorder prophylaxis
     Dosage: USED 4 TEASPOONS, OR 20 MILLILITERS, TO RINSE FOR 30 SECONDS, ONCE ONLY.
     Route: 002
     Dates: start: 20230210, end: 20230210
  2. Crest Complete Scope Toothpaste [Concomitant]

REACTIONS (18)
  - Dental caries [Recovering/Resolving]
  - Dry mouth [Unknown]
  - Aphthous ulcer [Recovering/Resolving]
  - Mouth ulceration [Recovering/Resolving]
  - Ageusia [Unknown]
  - Oral macule [Unknown]
  - Oral pain [Unknown]
  - Glossodynia [Unknown]
  - Oral discomfort [Unknown]
  - Tongue disorder [Recovering/Resolving]
  - Mouth haemorrhage [Unknown]
  - Oral fibroma [Unknown]
  - Dysgeusia [Unknown]
  - Stomatitis [Unknown]
  - Oedema mouth [Unknown]
  - Periodontitis [Unknown]
  - Excessive granulation tissue [Unknown]
  - Tongue haemorrhage [Unknown]

NARRATIVE: CASE EVENT DATE: 20230101
